FAERS Safety Report 7251564-4 (Version None)
Quarter: 2011Q1

REPORT INFORMATION
  Report Type: 
  Country: None (occurrence: None)
  Receive Date: 20110128
  Receipt Date: 20110121
  Transmission Date: 20110831
  Serious: Yes (Death)
  Sender: FDA-Public Use
  Company Number: US-CEPHALON-2011000114

PATIENT
  Sex: Male

DRUGS (2)
  1. GEMZAR [Concomitant]
     Indication: LUNG NEOPLASM MALIGNANT
     Dates: end: 20101112
  2. PROVIGIL [Suspect]
     Indication: FATIGUE
     Route: 048

REACTIONS (1)
  - DEATH [None]
